FAERS Safety Report 9324795 (Version 1)
Quarter: 2013Q2

REPORT INFORMATION
  Report Type: Spontaneous
  Country: US (occurrence: None)
  Receive Date: 20130529
  Receipt Date: 20130529
  Transmission Date: 20140414
  Serious: Yes (Hospitalization)
  Sender: FDA-Public Use
  Company Number: 2013AP005541

PATIENT
  Age: 55 Year
  Sex: Female

DRUGS (5)
  1. AMOXICILLIN TRIHYDRATE [Suspect]
     Indication: PRODUCT USED FOR UNKNOWN INDICATION
     Dates: start: 20130104, end: 20130130
  2. DOXYCYCLINE HYDROCHLORIDE [Suspect]
     Dates: start: 20130104, end: 20130118
  3. METFORMIN HYDROCHLORIDE (METFORMIN HYDROCHLORIDE) [Suspect]
     Dates: end: 20130130
  4. ROXITHROMYCIN [Suspect]
     Dates: start: 20130122, end: 20130130
  5. ASPIRIN (ACETYLSALICYLIC ACID) [Suspect]
     Dates: end: 20130130

REACTIONS (3)
  - Jaundice cholestatic [None]
  - Hepatitis [None]
  - Acute hepatic failure [None]
